FAERS Safety Report 8914076 (Version 1)
Quarter: 2012Q4

REPORT INFORMATION
  Report Type: Report from Study
  Country: DK (occurrence: DE)
  Receive Date: 20121119
  Receipt Date: 20121119
  Transmission Date: 20130627
  Serious: Yes (Other)
  Sender: FDA-Public Use
  Company Number: DE-FRI-1000040369

PATIENT
  Age: 55 Year
  Sex: Male

DRUGS (15)
  1. CITALOPRAM [Suspect]
     Dosage: 40 mg
     Route: 048
     Dates: start: 2007, end: 20120330
  2. CITALOPRAM [Suspect]
     Dosage: 30 mg
     Route: 048
     Dates: start: 20120331, end: 20120403
  3. CITALOPRAM [Suspect]
     Dosage: 20 mg
     Route: 048
     Dates: start: 20120404, end: 20120406
  4. CITALOPRAM [Suspect]
     Dosage: 10 mg
     Route: 048
     Dates: start: 20120407, end: 20120410
  5. RISPERDAL [Suspect]
     Dosage: 3.5714 mg
     Route: 050
     Dates: start: 2007, end: 20120315
  6. LEPONEX [Suspect]
     Dosage: 200 mg
     Route: 048
     Dates: start: 2008, end: 20111222
  7. LEPONEX [Suspect]
     Dosage: 250 mg
     Route: 048
     Dates: start: 20111223, end: 20111224
  8. LEPONEX [Suspect]
     Dosage: 300 mg
     Route: 048
     Dates: start: 20111225, end: 20120207
  9. LEPONEX [Suspect]
     Dosage: 300 - 600 mg
     Route: 048
     Dates: start: 20120208, end: 20120410
  10. LEPONEX [Suspect]
     Dosage: 700 mg
     Route: 048
     Dates: start: 20120411
  11. SOLIAN [Suspect]
     Dosage: 200 mg
     Route: 048
     Dates: start: 20120404, end: 20120405
  12. SOLIAN [Suspect]
     Dosage: 400 mg
     Route: 048
     Dates: start: 20120406
  13. DIPIPERON [Suspect]
     Dosage: 80 mg
     Route: 048
     Dates: start: 20120207
  14. TAVOR [Concomitant]
     Dosage: 1 mg
     Route: 048
     Dates: start: 20120330, end: 20120508
  15. RAMIPRIL [Concomitant]
     Dosage: 7.5 mg
     Route: 048
     Dates: start: 2007

REACTIONS (3)
  - Electrocardiogram QT prolonged [Recovered/Resolved]
  - Sinus tachycardia [Recovered/Resolved]
  - Potentiating drug interaction [Recovered/Resolved]
